FAERS Safety Report 5790253-X (Version None)
Quarter: 2008Q2

REPORT INFORMATION
  Report Type: 
  Country: None (occurrence: None)
  Receive Date: 20080626
  Receipt Date: 20080513
  Transmission Date: 20081010
  Serious: No
  Sender: FDA-Public Use
  Company Number: A0707030A

PATIENT
  Sex: Female
  Weight: 121.4 kg

DRUGS (3)
  1. ALLI [Suspect]
     Route: 048
     Dates: start: 20080108
  2. SLEEPING PILLS [Concomitant]
  3. UNKNOWN MEDICATION [Concomitant]

REACTIONS (26)
  - ABDOMINAL DISTENSION [None]
  - ANOREXIA [None]
  - BACK PAIN [None]
  - COUGH [None]
  - DEPRESSED MOOD [None]
  - DEPRESSION [None]
  - DIARRHOEA [None]
  - DRUG INEFFECTIVE [None]
  - DYSPEPSIA [None]
  - FATIGUE [None]
  - FOOD CRAVING [None]
  - GASTRIC DISORDER [None]
  - HUNGER [None]
  - HYPERPHAGIA [None]
  - INFLUENZA [None]
  - MALAISE [None]
  - MIGRAINE [None]
  - NERVE BLOCK [None]
  - PAIN [None]
  - PAIN IN EXTREMITY [None]
  - PHARYNGITIS STREPTOCOCCAL [None]
  - SINUSITIS [None]
  - STRESS [None]
  - TENDERNESS [None]
  - WEIGHT FLUCTUATION [None]
  - WEIGHT INCREASED [None]
